FAERS Safety Report 4621381-X (Version None)
Quarter: 2005Q1

REPORT INFORMATION
  Report Type: 
  Country: None (occurrence: None)
  Receive Date: 20050325
  Receipt Date: 20050310
  Transmission Date: 20050727
  Serious: Yes (Life-Threatening, Hospitalization)
  Sender: FDA-Public Use
  Company Number: D01200301007

PATIENT
  Age: 56 Year
  Sex: Male

DRUGS (9)
  1. CISPLATIN [Suspect]
     Indication: SMALL CELL LUNG CANCER EXTENSIVE STAGE
     Dosage: 80 MG/M2 CONT - INTRAVENOUS NOS
     Route: 042
     Dates: start: 20030701, end: 20030701
  2. ETOPOSIDE [Suspect]
     Indication: SMALL CELL LUNG CANCER EXTENSIVE STAGE
     Dosage: 120 MG/M2 GIVEN ON DAYS 1, 2 AND 3, IN A 30-MINUTE INFUSION- INTRAVENOUS
     Route: 042
     Dates: start: 20030701, end: 20030703
  3. PANTOPRAZOLE SODIUM [Concomitant]
  4. MORPHINE SULFATE [Concomitant]
  5. ALLOPURINOL [Concomitant]
  6. OMEPRAZOLE [Concomitant]
  7. HEPARIN-FRACTION, CALCIUM SALT [Concomitant]
  8. MORTHINE SULFATE [Concomitant]
  9. CODEINE [Concomitant]

REACTIONS (12)
  - ANAEMIA [None]
  - ASTHENIA [None]
  - CARDIOMYOPATHY [None]
  - CIRCULATORY COLLAPSE [None]
  - ELECTROCARDIOGRAM ABNORMAL [None]
  - ELECTROCARDIOGRAM ST SEGMENT DEPRESSION [None]
  - ELECTROCARDIOGRAM ST SEGMENT ELEVATION [None]
  - LUNG INFILTRATION [None]
  - METASTASES TO CENTRAL NERVOUS SYSTEM [None]
  - METASTASES TO LIVER [None]
  - NEOPLASM PROGRESSION [None]
  - PLEURAL EFFUSION [None]
